FAERS Safety Report 24187561 (Version 1)
Quarter: 2024Q3

REPORT INFORMATION
  Report Type: Spontaneous
  Country: IN (occurrence: IN)
  Receive Date: 20240808
  Receipt Date: 20240808
  Transmission Date: 20241017
  Serious: Yes (Death)
  Sender: RANBAXY
  Company Number: IN-SUN PHARMACEUTICAL INDUSTRIES LTD-2024R1-460988

PATIENT
  Age: 62 Year
  Sex: Male

DRUGS (4)
  1. EPINEPHRINE [Suspect]
     Active Substance: EPINEPHRINE
     Indication: Product used for unknown indication
     Dosage: UNK
     Route: 065
  2. CALCIUM GLUCONATE [Suspect]
     Active Substance: CALCIUM GLUCONATE
     Indication: Product used for unknown indication
     Dosage: UNK
     Route: 065
  3. NOREPINEPHRINE [Suspect]
     Active Substance: NOREPINEPHRINE\NOREPINEPHRINE BITARTRATE
     Indication: Blood pressure management
     Dosage: UNK (10 ML/H)
     Route: 042
  4. VASOPRESSIN [Suspect]
     Active Substance: VASOPRESSIN
     Indication: Product used for unknown indication
     Dosage: UNK (2.5 ML)
     Route: 042

REACTIONS (1)
  - Drug ineffective [Fatal]
